FAERS Safety Report 6337066-8 (Version None)
Quarter: 2009Q3

REPORT INFORMATION
  Report Type: 
  Country: None (occurrence: None)
  Receive Date: 20090901
  Receipt Date: 20090820
  Transmission Date: 20100115
  Serious: Yes (Death, Hospitalization)
  Sender: FDA-Public Use
  Company Number: TH-BAXTER-2009BH013231

PATIENT
  Age: 71 Year
  Sex: Female

DRUGS (1)
  1. DIANEAL [Suspect]
     Indication: PERITONEAL DIALYSIS
     Route: 033
     Dates: start: 20071001, end: 20090819

REACTIONS (2)
  - CARDIAC FAILURE [None]
  - CARDIAC FAILURE CONGESTIVE [None]
